FAERS Safety Report 4929084-9 (Version None)
Quarter: 2006Q1

REPORT INFORMATION
  Report Type: 
  Country: None (occurrence: None)
  Receive Date: 20060301
  Receipt Date: 20050831
  Transmission Date: 20060701
  Serious: Yes (Hospitalization)
  Sender: FDA-Public Use
  Company Number: US-MERCK-0509USA00110

PATIENT
  Age: 54 Year
  Sex: Male

DRUGS (4)
  1. VIOXX [Suspect]
     Route: 048
     Dates: start: 20000101, end: 20040101
  2. CELEBREX [Concomitant]
     Route: 048
     Dates: start: 20000101, end: 20040101
  3. INSULIN, BIPHASIC ISOPHANE [INJECTION] [Concomitant]
     Route: 051
  4. ASPIRIN [Concomitant]
     Route: 065

REACTIONS (3)
  - CORONARY ARTERY DISEASE [None]
  - PRODUCTIVE COUGH [None]
  - VENTRICULAR INTERNAL DIAMETER ABNORMAL [None]
